FAERS Safety Report 8855084 (Version 1)
Quarter: 2012Q4

REPORT INFORMATION
  Report Type: Report from Study
  Country: DE (occurrence: DE)
  Receive Date: 20121023
  Receipt Date: 20121023
  Transmission Date: 20130627
  Serious: Yes (Hospitalization)
  Sender: FDA-Public Use
  Company Number: DE-TEVA-362721GER

PATIENT
  Age: 35 Year
  Sex: Female
  Weight: 72 kg

DRUGS (4)
  1. MYOCET [Suspect]
     Indication: BREAST CANCER
     Route: 042
     Dates: start: 20120815, end: 20121015
  2. PACLITAXEL [Suspect]
     Indication: BREAST CANCER
     Route: 042
     Dates: start: 20120815, end: 20121015
  3. TRASTUZUMAB [Suspect]
     Indication: BREAST CANCER
     Route: 042
     Dates: start: 20120815
  4. LAPATINIB [Suspect]
     Indication: BREAST CANCER
     Route: 048
     Dates: start: 20120815, end: 20121004

REACTIONS (1)
  - Encephalitis [Recovered/Resolved]
